FAERS Safety Report 26022625 (Version 1)
Quarter: 2025Q4

REPORT INFORMATION
  Report Type: Spontaneous
  Country: US (occurrence: None)
  Receive Date: 20251110
  Receipt Date: 20251110
  Transmission Date: 20260118
  Serious: Yes (Hospitalization)
  Sender: FDA-CTU
  Company Number: None

PATIENT
  Sex: Female

DRUGS (9)
  1. DASATINIB [Suspect]
     Active Substance: DASATINIB
     Indication: Acute leukaemia
     Dosage: TAKE 1 TABLET (70 MG TOTAL) BY MOUTH 1 (ONE) TIME EACH DAY FOLLOWING INPATIENT TREATMENT, TAKE ONCE DAILY AT THE SAME TIME EACH DAY, WITH OR WITHOUT FOOD.. SWALLOW WHOLE; DO NOT BREAK, CUT, OR CRUSH.
     Route: 048
     Dates: start: 20250828
  2. ACYCLOVIR [Concomitant]
     Active Substance: ACYCLOVIR
  3. BACTRIM DS [Concomitant]
     Active Substance: SULFAMETHOXAZOLE\TRIMETHOPRIM
  4. BUPROPION TAB 150MG XL [Concomitant]
  5. CHOLECALCIF POW [Concomitant]
  6. CLOBETASOL PROPIONATE [Concomitant]
     Active Substance: CLOBETASOL PROPIONATE
  7. CYANOCOBALAM INJ 1000MCG [Concomitant]
  8. DASATINIB TAB 140MG [Concomitant]
  9. ELDERBERRY CAP 500MG [Concomitant]

REACTIONS (2)
  - Therapy interrupted [None]
  - Product use issue [None]
